FAERS Safety Report 7064343-8 (Version None)
Quarter: 2010Q4

REPORT INFORMATION
  Report Type: 
  Country: None (occurrence: None)
  Receive Date: 20101027
  Receipt Date: 20101014
  Transmission Date: 20110411
  Serious: Yes (Hospitalization, Other)
  Sender: FDA-Public Use
  Company Number: TR-PAR PHARMACEUTICAL, INC-2010SCPR002246

PATIENT
  Age: 54 Year
  Sex: Female

DRUGS (7)
  1. RISPERIDONE [Suspect]
     Indication: MANIA
     Dosage: 5 MG, PER DAY
     Route: 065
  2. RISPERIDONE [Interacting]
     Dosage: 3 MG, PER DAY
     Route: 065
  3. LITHIUM [Interacting]
     Indication: MANIA
     Dosage: 1200 MG, PER DAY
     Route: 065
  4. LITHIUM [Interacting]
     Dosage: 1500 MG, PER DAY
     Route: 065
  5. LITHIUM [Interacting]
     Dosage: 600 MG, PER DAY
     Route: 065
  6. BIPERIDEN HYDROCHLORIDE TAB [Concomitant]
     Indication: MANIA
     Dosage: 4 MG, PER DAY
     Route: 065
  7. BIPERIDEN HYDROCHLORIDE TAB [Concomitant]
     Dosage: 6 MG, PER DAY
     Route: 065

REACTIONS (9)
  - ANAEMIA [None]
  - DEEP VEIN THROMBOSIS [None]
  - DRUG INTERACTION [None]
  - HYPERNATRAEMIA [None]
  - HYPERTHYROIDISM [None]
  - MYOGLOBINAEMIA [None]
  - NEUROLEPTIC MALIGNANT SYNDROME [None]
  - PNEUMONIA [None]
  - THALASSAEMIA BETA [None]
